FAERS Safety Report 9584113 (Version 1)
Quarter: 2013Q4

REPORT INFORMATION
  Report Type: Spontaneous
  Country: US (occurrence: US)
  Receive Date: 20131002
  Receipt Date: 20131002
  Transmission Date: 20140711
  Serious: No
  Sender: FDA-Public Use
  Company Number: US-AMGEN-USASP2013051357

PATIENT
  Age: 71 Year
  Sex: Female

DRUGS (12)
  1. ENBREL [Suspect]
     Indication: RHEUMATOID ARTHRITIS
     Dosage: UNK
     Route: 065
     Dates: start: 20130624
  2. ACYCLOVIR                          /00587301/ [Concomitant]
     Dosage: 400 MG, UNK
  3. ASA [Concomitant]
     Dosage: 81 MG, UNK
  4. COUMADIN                           /00014802/ [Concomitant]
     Dosage: 7.5 MG, UNK
  5. DUETACT [Concomitant]
     Dosage: 30 MG, UNK
  6. METHOTREXATE [Concomitant]
     Dosage: 2.5 MG, UNK
  7. MIRALAX                            /00754501/ [Concomitant]
     Dosage: UNK
  8. NORCO [Concomitant]
     Dosage: 7.5/325 MG
  9. NORVASC [Concomitant]
     Dosage: 10 MG, UNK
  10. PREDNISONE [Concomitant]
     Dosage: 10 MG, UNK
  11. TEKTURNA [Concomitant]
     Dosage: 150 MG, UNK
  12. TOPROL [Concomitant]
     Dosage: 25 MG, UNK

REACTIONS (1)
  - Skin discolouration [Unknown]
